FAERS Safety Report 4583770-1 (Version None)
Quarter: 2005Q1

REPORT INFORMATION
  Report Type: 
  Country: None (occurrence: None)
  Receive Date: 20050216
  Receipt Date: 20050207
  Transmission Date: 20050727
  Serious: Yes (Other)
  Sender: FDA-Public Use
  Company Number: 200511306GDDC

PATIENT
  Age: 63 Year
  Sex: Female

DRUGS (6)
  1. FLAGYL [Suspect]
     Dosage: DOSE: UNK
     Route: 048
  2. BIAXIN [Suspect]
     Dosage: DOSE: UNK
     Route: 048
  3. LOSEC [Suspect]
     Dosage: DOSE: UNK
     Route: 048
  4. ALPRAZOLAM [Concomitant]
  5. HYTRIN [Concomitant]
  6. NOROXIN [Concomitant]

REACTIONS (4)
  - ASTHENIA [None]
  - DIARRHOEA [None]
  - DIZZINESS [None]
  - HYPOKALAEMIA [None]
